FAERS Safety Report 5163323-7 (Version None)
Quarter: 2006Q4

REPORT INFORMATION
  Report Type: 
  Country: None (occurrence: None)
  Receive Date: 20061204
  Receipt Date: 20061127
  Transmission Date: 20070319
  Serious: Yes (Hospitalization)
  Sender: FDA-Public Use
  Company Number: DE-BAYER-200611614BVD

PATIENT
  Sex: Female

DRUGS (3)
  1. AVELOX [Suspect]
     Indication: UNEVALUABLE EVENT
  2. VANCOMYCIN HCL [Concomitant]
     Indication: UNEVALUABLE EVENT
  3. FORTUM [Concomitant]
     Indication: UNEVALUABLE EVENT

REACTIONS (1)
  - RHABDOMYOLYSIS [None]
